FAERS Safety Report 12799603 (Version 1)
Quarter: 2016Q3

REPORT INFORMATION
  Report Type: Spontaneous
  Country: CH (occurrence: CH)
  Receive Date: 20160930
  Receipt Date: 20160930
  Transmission Date: 20161109
  Serious: Yes (Hospitalization)
  Sender: FDA-Public Use
  Company Number: CH-SA-2016SA179611

PATIENT
  Age: 70 Year
  Sex: Male

DRUGS (10)
  1. ATENOLOL. [Concomitant]
     Active Substance: ATENOLOL
     Dates: end: 201506
  2. AMLODIPIN [Suspect]
     Active Substance: AMLODIPINE BESYLATE
     Route: 065
     Dates: start: 201505
  3. TOREM [Concomitant]
     Active Substance: TORSEMIDE
     Dates: end: 20150709
  4. PHYSIOTENS [Concomitant]
     Active Substance: MOXONIDINE
     Dates: start: 201505, end: 20150709
  5. COAPROVEL FORTE [Suspect]
     Active Substance: HYDROCHLOROTHIAZIDE\IRBESARTAN
     Route: 065
  6. LANSOPRAZOLE. [Suspect]
     Active Substance: LANSOPRAZOLE
     Route: 065
     Dates: end: 201506
  7. TOREM [Concomitant]
     Active Substance: TORSEMIDE
  8. DILATREND [Suspect]
     Active Substance: CARVEDILOL
     Route: 065
     Dates: end: 20150821
  9. PANTOZOL [Suspect]
     Active Substance: PANTOPRAZOLE SODIUM
     Route: 065
     Dates: start: 20150716
  10. ALLOPURINOL. [Suspect]
     Active Substance: ALLOPURINOL
     Route: 065

REACTIONS (3)
  - Sjogren^s syndrome [Not Recovered/Not Resolved]
  - Xerophthalmia [Not Recovered/Not Resolved]
  - Dry mouth [Not Recovered/Not Resolved]

NARRATIVE: CASE EVENT DATE: 201505
